FAERS Safety Report 9618682 (Version 2)
Quarter: 2013Q4

REPORT INFORMATION
  Report Type: Spontaneous
  Country: US (occurrence: US)
  Receive Date: 20131014
  Receipt Date: 20131021
  Transmission Date: 20140711
  Serious: Yes (Other)
  Sender: FDA-Public Use
  Company Number: US-SA-2013SA097942

PATIENT
  Age: 81 Year
  Sex: Female
  Weight: 59 kg

DRUGS (2)
  1. LANTUS SOLOSTAR [Suspect]
     Indication: DIABETES MELLITUS
     Dosage: DOSE:15 UNIT(S)
     Route: 051
  2. SOLOSTAR [Concomitant]

REACTIONS (5)
  - Blindness [Unknown]
  - Eye injury [Unknown]
  - Chronic obstructive pulmonary disease [Unknown]
  - Pigmentation disorder [Unknown]
  - Neoplasm [Unknown]
